FAERS Safety Report 20680966 (Version 3)
Quarter: 2024Q3

REPORT INFORMATION
  Report Type: Spontaneous
  Country: US (occurrence: US)
  Receive Date: 20220406
  Receipt Date: 20240920
  Transmission Date: 20241017
  Serious: No
  Sender: PFIZER
  Company Number: US-PFIZER INC-202100929813

PATIENT
  Age: 68 Year
  Sex: Female

DRUGS (2)
  1. IBRANCE [Suspect]
     Active Substance: PALBOCICLIB
     Dosage: 125 MG, DAILY(TAKE 1 TABLET BY MOUTH DAILY)
     Route: 048
  2. IBRANCE [Suspect]
     Active Substance: PALBOCICLIB
     Dosage: TAKE 1 TABLET A DAY FOR 21 DAYS, THEN 7 DAYS OFF

REACTIONS (3)
  - Hypoaesthesia [Unknown]
  - Hearing disability [Unknown]
  - Aphonia [Unknown]
